FAERS Safety Report 8282320-6 (Version None)
Quarter: 2012Q2

REPORT INFORMATION
  Report Type: 
  Country: None (occurrence: None)
  Receive Date: 20120413
  Receipt Date: 20120413
  Transmission Date: 20120825
  Serious: Yes (Life-Threatening, Other)
  Sender: FDA-Public Use
  Company Number: None

PATIENT
  Age: 49 Year
  Sex: Male
  Weight: 88.904 kg

DRUGS (2)
  1. CHANTIX [Suspect]
     Indication: SMOKING CESSATION THERAPY
     Dosage: 1.0 MG
     Route: 048
     Dates: start: 20120405, end: 20120412
  2. CHANTIX [Concomitant]

REACTIONS (5)
  - MALAISE [None]
  - THINKING ABNORMAL [None]
  - DEPRESSION [None]
  - SUICIDAL IDEATION [None]
  - MENTAL DISORDER [None]
